FAERS Safety Report 7628331-2 (Version None)
Quarter: 2011Q3

REPORT INFORMATION
  Report Type: 
  Country: None (occurrence: None)
  Receive Date: 20110722
  Receipt Date: 20110719
  Transmission Date: 20111222
  Serious: Yes (Life-Threatening, Hospitalization)
  Sender: FDA-Public Use
  Company Number: DE-JNJFOC-20110706212

PATIENT
  Age: 39 Year
  Sex: Male
  Weight: 74 kg

DRUGS (3)
  1. RISPERDAL [Suspect]
     Indication: CONDUCT DISORDER
     Route: 048
     Dates: start: 20101025, end: 20101220
  2. LEVOTHYROXINE SODIUM [Concomitant]
     Indication: HYPOTHYROIDISM
     Route: 048
     Dates: start: 20071129
  3. CICLOPIROX [Concomitant]
     Indication: ONYCHOMYCOSIS
     Route: 065
     Dates: start: 20100219

REACTIONS (2)
  - DEEP VEIN THROMBOSIS [None]
  - PULMONARY EMBOLISM [None]
